FAERS Safety Report 6830814-X (Version None)
Quarter: 2010Q3

REPORT INFORMATION
  Report Type: 
  Country: None (occurrence: None)
  Receive Date: 20100712
  Receipt Date: 20100708
  Transmission Date: 20110219
  Serious: Yes (Other)
  Sender: FDA-Public Use
  Company Number: FR-WYE-G06376410

PATIENT
  Age: 75 Year
  Sex: Male

DRUGS (1)
  1. TORISEL [Suspect]
     Indication: RENAL CANCER METASTATIC
     Dosage: 25 MG (FREQUENCY UNKNOWN)
     Route: 042
     Dates: start: 20100101

REACTIONS (1)
  - LUNG DISORDER [None]
